FAERS Safety Report 4778902-6 (Version None)
Quarter: 2005Q3

REPORT INFORMATION
  Report Type: 
  Country: None (occurrence: None)
  Receive Date: 20050922
  Receipt Date: 20050912
  Transmission Date: 20060218
  Serious: Yes (Other)
  Sender: FDA-Public Use
  Company Number: 2005126994

PATIENT
  Sex: Female
  Weight: 68.0396 kg

DRUGS (9)
  1. LIPITOR [Suspect]
     Indication: BLOOD CHOLESTEROL INCREASED
     Dosage: 20 MG (20 MG, 1 IN 1 D), ORAL
     Route: 048
  2. ZOLOFT [Suspect]
     Indication: DEPRESSION
     Dosage: 25 MG (25 MG, 1 IN 1 D), ORAL
     Route: 048
  3. CHEMOTHERAPY NOS (CHEMOTHERAPY NOS) [Suspect]
     Indication: MESOTHELIOMA
     Dosage: UNKNOWN (1 IN 3 WK), UNKNOWN
     Route: 065
     Dates: start: 20050101
  4. TRAZODONE HCL [Concomitant]
  5. QUININE SULFATE [Concomitant]
  6. LEVOTHYROXINE SODIUM [Concomitant]
  7. HYDROCHLOROTHIAZIDE [Concomitant]
  8. FOLIC ACID [Concomitant]
  9. POTASSIUM CHLORIDE [Concomitant]

REACTIONS (7)
  - BODY HEIGHT DECREASED [None]
  - DEPRESSION [None]
  - DRUG INEFFECTIVE [None]
  - FATIGUE [None]
  - LARGE INTESTINE PERFORATION [None]
  - MESOTHELIOMA [None]
  - NAUSEA [None]
